FAERS Safety Report 5956373-1 (Version None)
Quarter: 2008Q4

REPORT INFORMATION
  Report Type: 
  Country: None (occurrence: None)
  Receive Date: 20081118
  Receipt Date: 20081109
  Transmission Date: 20090506
  Serious: Yes (Hospitalization)
  Sender: FDA-Public Use
  Company Number: US-AMGEN-QUU318137

PATIENT
  Sex: Female

DRUGS (1)
  1. ENBREL [Suspect]
     Indication: PSORIATIC ARTHROPATHY
     Route: 058

REACTIONS (8)
  - ABDOMINOPLASTY [None]
  - BODY TEMPERATURE INCREASED [None]
  - FATIGUE [None]
  - HYPOAESTHESIA [None]
  - INCISION SITE HAEMORRHAGE [None]
  - PARAESTHESIA [None]
  - PSEUDOMONAS INFECTION [None]
  - RASH [None]
